FAERS Safety Report 9011396 (Version 2)
Quarter: 2013Q1

REPORT INFORMATION
  Report Type: Spontaneous
  Country: US (occurrence: US)
  Receive Date: 20130111
  Receipt Date: 20130206
  Transmission Date: 20140127
  Serious: Yes (Other)
  Sender: FDA-Public Use
  Company Number: US-ASTRAZENECA-2013SE01079

PATIENT
  Age: 5 Year
  Sex: Male
  Weight: 21.3 kg

DRUGS (10)
  1. PULMICORT RESPULES [Suspect]
     Indication: ASTHMA
     Route: 055
     Dates: start: 2009, end: 201208
  2. PULMICORT RESPULES [Suspect]
     Indication: ASTHMA
     Route: 055
     Dates: start: 201208
  3. SYMBICORT PMDI [Suspect]
     Indication: ASTHMA
     Dosage: 160/4.5 MCG, TWO PUFFS BID
     Route: 055
     Dates: start: 201208
  4. NEXIUM [Suspect]
     Indication: GASTROOESOPHAGEAL REFLUX DISEASE
     Route: 048
     Dates: start: 2009
  5. FORADIL [Suspect]
     Indication: ASTHMA
     Route: 065
     Dates: start: 2009, end: 201208
  6. ZONEGRAN [Suspect]
     Indication: CONVULSION
     Route: 048
     Dates: start: 201205
  7. ZONEGRAN [Suspect]
     Indication: CONVULSION
     Route: 048
     Dates: start: 201205
  8. ASTEPRO [Concomitant]
     Indication: MULTIPLE ALLERGIES
     Route: 045
     Dates: start: 2009
  9. VITAMIN B6 [Concomitant]
     Indication: ABNORMAL BEHAVIOUR
     Route: 048
     Dates: start: 201205
  10. MULTIVITAMIN [Concomitant]

REACTIONS (8)
  - Convulsion [Recovering/Resolving]
  - Nasopharyngitis [Unknown]
  - Asthma [Unknown]
  - Immunodeficiency [Unknown]
  - Blood glucose decreased [Unknown]
  - Abnormal behaviour [Unknown]
  - Candida infection [Recovered/Resolved]
  - Off label use [Unknown]
